FAERS Safety Report 23937049 (Version 1)
Quarter: 2024Q2

REPORT INFORMATION
  Report Type: Spontaneous
  Country: US (occurrence: US)
  Receive Date: 20240604
  Receipt Date: 20240604
  Transmission Date: 20240716
  Serious: Yes (Death, Life-Threatening, Hospitalization, Other)
  Sender: FDA-Public Use
  Company Number: US-MLMSERVICE-20240514-PI062113-00273-1

PATIENT
  Age: 23 Year
  Sex: Male

DRUGS (1)
  1. PROPOFOL [Suspect]
     Active Substance: PROPOFOL
     Indication: Sedation
     Dosage: UNK
     Route: 065

REACTIONS (3)
  - Sudden cardiac death [Fatal]
  - Syncope [Fatal]
  - Brugada syndrome [Fatal]
